FAERS Safety Report 21396835 (Version 1)
Quarter: 2022Q3

REPORT INFORMATION
  Report Type: Spontaneous
  Country: AU (occurrence: None)
  Receive Date: 20220930
  Receipt Date: 20220930
  Transmission Date: 20221027
  Serious: Yes (Other)
  Sender: FDA-Public Use
  Company Number: AU-ROCHE-3123344

PATIENT
  Sex: Female

DRUGS (35)
  1. ATEZOLIZUMAB [Suspect]
     Active Substance: ATEZOLIZUMAB
     Indication: Breast cancer metastatic
     Dosage: INTERVAL: 1 WEEK
     Route: 041
     Dates: start: 20210811, end: 20210927
  2. CAPECITABINE [Suspect]
     Active Substance: CAPECITABINE
     Indication: HER2 positive breast cancer
     Dosage: INTERVAL: 1 DAY
     Route: 048
     Dates: start: 20210114
  3. TRASTUZUMAB [Suspect]
     Active Substance: TRASTUZUMAB
     Indication: Breast cancer metastatic
     Dosage: INTERVAL: 3 WEEK
     Route: 041
     Dates: start: 20180523
  4. ABRAXANE [Suspect]
     Active Substance: PACLITAXEL
     Indication: Breast cancer metastatic
     Dosage: INTERVAL: 1 WEEK
     Route: 042
     Dates: start: 20210811
  5. PACLITAXEL [Suspect]
     Active Substance: PACLITAXEL
     Indication: Breast cancer metastatic
     Route: 042
     Dates: start: 20210811
  6. ARTHROCOMB [Concomitant]
     Indication: Prophylaxis
     Dosage: INTERVAL: 1 DAY
     Route: 048
     Dates: start: 20210407, end: 20210602
  7. BISOPROLOL [Concomitant]
     Active Substance: BISOPROLOL
  8. DRONABINOL [Concomitant]
     Active Substance: DRONABINOL
     Indication: Weight decreased
     Dates: start: 20191028
  9. HYDROMORPHONE HYDROCHLORIDE [Concomitant]
     Active Substance: HYDROMORPHONE HYDROCHLORIDE
     Indication: Subclavian vein thrombosis
     Dates: start: 20210615, end: 20210907
  10. KETOROLAC TROMETHAMINE [Concomitant]
     Active Substance: KETOROLAC TROMETHAMINE
  11. LASIX [Concomitant]
     Active Substance: FUROSEMIDE
     Indication: Pleural effusion
     Dates: start: 20210913
  12. LISINOPRIL [Concomitant]
     Active Substance: LISINOPRIL
     Dates: start: 20170915, end: 20200525
  13. LISINOPRIL [Concomitant]
     Active Substance: LISINOPRIL
     Dates: start: 20200525, end: 20200815
  14. POLYETHYLENE GLYCOLS [Concomitant]
     Active Substance: POLYETHYLENE GLYCOLS
     Indication: Constipation
  15. MEFENAMIC ACID [Concomitant]
     Active Substance: MEFENAMIC ACID
     Indication: Arthralgia
     Dates: start: 20210218, end: 20210312
  16. DIPYRONE [Concomitant]
     Active Substance: DIPYRONE
     Indication: Product used for unknown indication
     Dates: start: 20210818, end: 20210907
  17. DIPYRONE [Concomitant]
     Active Substance: DIPYRONE
     Dates: start: 20210907
  18. POLYETHYLENE GLYCOL 3350\POTASSIUM CHLORIDE\SODIUM BICARBONATE\SODIUM [Concomitant]
     Active Substance: POLYETHYLENE GLYCOL 3350\POTASSIUM CHLORIDE\SODIUM BICARBONATE\SODIUM CHLORIDE
     Indication: Constipation
     Route: 048
     Dates: start: 20210614
  19. MORPHINE [Concomitant]
     Active Substance: MORPHINE
     Indication: Axillary vein thrombosis
     Route: 042
     Dates: start: 20210907, end: 20210912
  20. MORPHINE [Concomitant]
     Active Substance: MORPHINE
     Indication: Subclavian vein thrombosis
     Dosage: INTERVAL: 1 HOUR
     Route: 042
     Dates: start: 20210912
  21. NOVALGIN (METAMIZOLE SODIUM) [Concomitant]
     Active Substance: METAMIZOLE SODIUM
     Indication: Prophylaxis
     Route: 048
     Dates: start: 20210818, end: 20210907
  22. ONDANSETRON [Concomitant]
     Active Substance: ONDANSETRON
     Indication: Product used for unknown indication
     Dates: start: 20210811, end: 20210927
  23. ONDANSETRON [Concomitant]
     Active Substance: ONDANSETRON
     Dates: start: 20180523, end: 20200804
  24. ONDANSETRON [Concomitant]
     Active Substance: ONDANSETRON
     Dates: start: 20210818
  25. PARACODIN [Concomitant]
     Indication: Pleural effusion
     Dates: start: 20210924, end: 20210924
  26. METOCLOPRAMIDE HYDROCHLORIDE [Concomitant]
     Active Substance: METOCLOPRAMIDE HYDROCHLORIDE
     Indication: Nausea
     Dates: start: 20190921
  27. METOCLOPRAMIDE HYDROCHLORIDE [Concomitant]
     Active Substance: METOCLOPRAMIDE HYDROCHLORIDE
     Dates: start: 20210811
  28. METOCLOPRAMIDE HYDROCHLORIDE [Concomitant]
     Active Substance: METOCLOPRAMIDE HYDROCHLORIDE
     Dates: start: 20191028, end: 20200804
  29. SERTRALINE [Concomitant]
     Active Substance: SERTRALINE HYDROCHLORIDE
     Indication: Insomnia
     Dates: start: 20191106
  30. TRAMADOL HYDROCHLORIDE [Concomitant]
     Active Substance: TRAMADOL HYDROCHLORIDE
     Indication: Back pain
     Dosage: INTERVAL: 1 DAY ,
     Route: 048
     Dates: start: 20210407, end: 20210602
  31. UNASYN [Concomitant]
     Active Substance: AMPICILLIN SODIUM\SULBACTAM SODIUM
     Indication: Pleural effusion
     Dates: start: 20210920, end: 20210923
  32. XARELTO [Concomitant]
     Active Substance: RIVAROXABAN
     Indication: Product used for unknown indication
     Route: 048
     Dates: start: 20210818
  33. ZOFRAN [Concomitant]
     Active Substance: ONDANSETRON HYDROCHLORIDE
     Indication: Nausea
     Dates: start: 20210811
  34. ZOFRAN [Concomitant]
     Active Substance: ONDANSETRON HYDROCHLORIDE
     Dates: start: 20191028
  35. ZOLPIDEM TARTRATE [Concomitant]
     Active Substance: ZOLPIDEM TARTRATE
     Dates: start: 20190916

REACTIONS (3)
  - Ejection fraction decreased [Unknown]
  - Hypothyroidism [Recovering/Resolving]
  - Musculoskeletal chest pain [Recovering/Resolving]

NARRATIVE: CASE EVENT DATE: 20200525
